FAERS Safety Report 15099953 (Version 1)
Quarter: 2018Q3

REPORT INFORMATION
  Report Type: Spontaneous
  Country: US (occurrence: US)
  Receive Date: 20180703
  Receipt Date: 20180703
  Transmission Date: 20181010
  Serious: Yes (Life-Threatening, Hospitalization, Other)
  Sender: FDA-Public Use
  Company Number: US-SHILPA MEDICARE LIMITED-SML-US-2018-00044

PATIENT
  Age: 54 Year
  Sex: Female

DRUGS (2)
  1. CAPECITABINE, UNKNOWN [Suspect]
     Active Substance: CAPECITABINE
     Indication: INVASIVE DUCTAL BREAST CARCINOMA
  2. CAPECITABINE, UNKNOWN [Suspect]
     Active Substance: CAPECITABINE

REACTIONS (4)
  - Hypovolaemic shock [Unknown]
  - Vomiting [Unknown]
  - Diarrhoea [Unknown]
  - Toxicity to various agents [Unknown]
